FAERS Safety Report 21504659 (Version 2)
Quarter: 2022Q4

REPORT INFORMATION
  Report Type: Spontaneous
  Country: DE (occurrence: DE)
  Receive Date: 20221025
  Receipt Date: 20221115
  Transmission Date: 20230113
  Serious: Yes (Hospitalization)
  Sender: FDA-Public Use
  Company Number: DE-NOVARTISPH-NVSC2022DE238259

PATIENT
  Age: 63 Year
  Sex: Female

DRUGS (4)
  1. RITUXIMAB [Suspect]
     Active Substance: RITUXIMAB
     Indication: Diffuse large B-cell lymphoma
     Dosage: 570 MG (C2 D1, DRUG WILL BE ADMINISTERED AT A DOSE OF 375 MG/M2 INTRAVENOUSLY ON DAY 1 OF EACH 21-DA
     Route: 042
     Dates: start: 20220927, end: 20220927
  2. ETOPOSIDE [Suspect]
     Active Substance: ETOPOSIDE
     Indication: Diffuse large B-cell lymphoma
     Dosage: 148 MG (C2 D2, C2 D3, DRUG 100 MG/M2 WILL BE ADMINISTERED I.V. ON CYCLE DAYS 1, 2 AND 3)
     Route: 042
     Dates: start: 20220927, end: 20220929
  3. CARBOPLATIN [Suspect]
     Active Substance: CARBOPLATIN
     Indication: Diffuse large B-cell lymphoma
     Dosage: 630 MG (C2 D2, DRUG AUC 5 MAX 800 MG WILL BE ADMINISTERED I.V. ON CYCLE DAY 2)
     Route: 042
     Dates: start: 20220928, end: 20220928
  4. IFOSFAMIDE [Suspect]
     Active Substance: IFOSFAMIDE
     Indication: Diffuse large B-cell lymphoma
     Dosage: 8000 MG, C2 D2, (DRUG 5000 MG/M2 WILL BE ADMINISTERED I.V. OVER A 24 HR PERIOD STARTING ON CYCLE DAY
     Route: 042
     Dates: start: 20220928, end: 20220929

REACTIONS (1)
  - Febrile neutropenia [Recovered/Resolved]

NARRATIVE: CASE EVENT DATE: 20221010
